FAERS Safety Report 11965132 (Version 2)
Quarter: 2016Q1

REPORT INFORMATION
  Report Type: Report from Study
  Country: US (occurrence: US)
  Receive Date: 20160127
  Receipt Date: 20160129
  Transmission Date: 20160526
  Serious: Yes (Hospitalization)
  Sender: FDA-Public Use
  Company Number: US-AMGEN-USASL2016008599

PATIENT
  Age: 65 Year
  Sex: Male

DRUGS (1)
  1. ENBREL [Suspect]
     Active Substance: ETANERCEPT
     Indication: RHEUMATOID ARTHRITIS
     Dosage: 50 MG, QWK
     Route: 065
     Dates: start: 20150630, end: 201512

REACTIONS (4)
  - Renal disorder [Unknown]
  - Histoplasmosis disseminated [Unknown]
  - Drug hypersensitivity [Unknown]
  - Liver disorder [Unknown]

NARRATIVE: CASE EVENT DATE: 2015
